FAERS Safety Report 24053572 (Version 1)
Quarter: 2024Q3

REPORT INFORMATION
  Report Type: Spontaneous
  Country: US (occurrence: US)
  Receive Date: 20240705
  Receipt Date: 20240705
  Transmission Date: 20241016
  Serious: No
  Sender: BRISTOL MYERS SQUIBB
  Company Number: US-BRISTOL-MYERS SQUIBB COMPANY-2024-106885

PATIENT
  Age: 63 Year
  Sex: Female
  Weight: 84.82 kg

DRUGS (1)
  1. ORENCIA [Suspect]
     Active Substance: ABATACEPT
     Indication: Rheumatoid arthritis
     Dosage: FREQ : EVERY 10 DAYS, THEN EVERY FOUR WEEKS THEREAFTER
     Route: 042
     Dates: start: 20240404

REACTIONS (3)
  - Incorrect disposal of product [Unknown]
  - Product storage error [Unknown]
  - Off label use [Unknown]
